FAERS Safety Report 24423967 (Version 1)
Quarter: 2024Q4

REPORT INFORMATION
  Report Type: Spontaneous
  Country: US (occurrence: None)
  Receive Date: 20241010
  Receipt Date: 20241010
  Transmission Date: 20250115
  Serious: No
  Sender: Public
  Company Number: None

PATIENT
  Age: 48 Year
  Sex: Female
  Weight: 67.5 kg

DRUGS (10)
  1. AJOVY [Suspect]
     Active Substance: FREMANEZUMAB-VFRM
     Indication: Migraine prophylaxis
     Dosage: OTHER QUANTITY : 1 INJECTION(S);?OTHER FREQUENCY : ONCE A MONTH;?
     Route: 058
     Dates: start: 20240911, end: 20240911
  2. RELPAX [Concomitant]
     Active Substance: ELETRIPTAN HYDROBROMIDE
  3. FIORICET [Concomitant]
     Active Substance: ACETAMINOPHEN\BUTALBITAL\CAFFEINE
  4. ZOFRAN [Concomitant]
     Active Substance: ONDANSETRON HYDROCHLORIDE
  5. ESTROGENS [Concomitant]
     Active Substance: ESTROGENS
  6. PROGESTERONE [Concomitant]
     Active Substance: PROGESTERONE
  7. TESTOSTERONE [Concomitant]
     Active Substance: TESTOSTERONE
  8. VITAMIN B COMPLEX [Concomitant]
     Active Substance: CYANOCOBALAMIN\DEXPANTHENOL\NIACINAMIDE\PYRIDOXINE HYDROCHLORIDE\RIBOFLAVIN 5^-PHOSPHATE SODIUM\THIA
  9. Vitamin D3+K [Concomitant]
  10. MAGNESIUM CITRATE [Concomitant]
     Active Substance: MAGNESIUM CITRATE

REACTIONS (11)
  - Menopausal symptoms [None]
  - Anxiety [None]
  - Brain fog [None]
  - Arthralgia [None]
  - Fatigue [None]
  - Blood oestrogen decreased [None]
  - Vaginal haemorrhage [None]
  - Dysmenorrhoea [None]
  - Migraine [None]
  - Hot flush [None]
  - Insomnia [None]

NARRATIVE: CASE EVENT DATE: 20240914
